FAERS Safety Report 7306429-6 (Version None)
Quarter: 2011Q1

REPORT INFORMATION
  Report Type: 
  Country: None (occurrence: None)
  Receive Date: 20110222
  Receipt Date: 20110216
  Transmission Date: 20110831
  Serious: Yes (Hospitalization)
  Sender: FDA-Public Use
  Company Number: US-ABBOTT-11P-163-0705738-00

PATIENT
  Sex: Female
  Weight: 54.48 kg

DRUGS (6)
  1. KLONOPIN [Concomitant]
     Indication: DEPRESSION
  2. ADDERALL 10 [Concomitant]
     Indication: ATTENTION DEFICIT/HYPERACTIVITY DISORDER
  3. DESYREL [Concomitant]
     Indication: DEPRESSION
  4. DALMANE [Concomitant]
     Indication: INSOMNIA
  5. HUMIRA [Suspect]
     Indication: CROHN'S DISEASE
     Dates: start: 20080101
  6. KLONOPIN [Concomitant]
     Indication: ANXIETY

REACTIONS (5)
  - INTESTINAL OBSTRUCTION [None]
  - FEELING ABNORMAL [None]
  - SCAR [None]
  - PRODUCT QUALITY ISSUE [None]
  - CONSTIPATION [None]
